FAERS Safety Report 19835022 (Version 1)
Quarter: 2021Q3

REPORT INFORMATION
  Report Type: Spontaneous
  Country: SG (occurrence: SG)
  Receive Date: 20210915
  Receipt Date: 20210915
  Transmission Date: 20211014
  Serious: Yes (Hospitalization, Other)
  Sender: FDA-Public Use
  Company Number: SG-CANTON LABORATORIES, LLC-2118427

PATIENT
  Age: 25 Year
  Sex: Female
  Weight: 53.5 kg

DRUGS (4)
  1. PREGABALIN. [Suspect]
     Active Substance: PREGABALIN
  2. HALOPERIDOL LACTATE. [Suspect]
     Active Substance: HALOPERIDOL LACTATE
     Route: 030
  3. NAPROSYN [Suspect]
     Active Substance: NAPROXEN
     Indication: PRODUCT USED FOR UNKNOWN INDICATION
  4. PARACETAMOL [Suspect]
     Active Substance: ACETAMINOPHEN

REACTIONS (7)
  - Oculogyric crisis [Recovered/Resolved]
  - Intentional overdose [Recovered/Resolved]
  - Torticollis [Recovered/Resolved]
  - Dystonia [Recovered/Resolved]
  - Somnolence [Recovered/Resolved]
  - Drug level increased [Recovered/Resolved]
  - Drug interaction [Recovered/Resolved]
